FAERS Safety Report 21444353 (Version 2)
Quarter: 2022Q4

REPORT INFORMATION
  Report Type: Spontaneous
  Country: US (occurrence: US)
  Receive Date: 20221012
  Receipt Date: 20221115
  Transmission Date: 20230112
  Serious: No
  Sender: FDA-Public Use
  Company Number: US-JNJFOC-20221010357

PATIENT
  Age: 55 Year
  Sex: Male
  Weight: 162 kg

DRUGS (2)
  1. STELARA [Suspect]
     Active Substance: USTEKINUMAB
     Indication: Product used for unknown indication
     Route: 058
     Dates: start: 202204
  2. STELARA [Suspect]
     Active Substance: USTEKINUMAB

REACTIONS (6)
  - Product packaging issue [Unknown]
  - Product storage error [Unknown]
  - Device issue [Unknown]
  - Fall [Unknown]
  - Hand fracture [Unknown]
  - Product dose omission issue [Unknown]
